FAERS Safety Report 8384358-7 (Version None)
Quarter: 2012Q2

REPORT INFORMATION
  Report Type: 
  Country: None (occurrence: None)
  Receive Date: 20120524
  Receipt Date: 20120521
  Transmission Date: 20120825
  Serious: Yes (Other)
  Sender: FDA-Public Use
  Company Number: US-PFIZER INC-2012122285

PATIENT
  Sex: Female
  Weight: 119 kg

DRUGS (2)
  1. LYRICA [Suspect]
     Indication: FIBROMYALGIA
     Dosage: 100 MG, 2X/DAY
     Dates: start: 20110101, end: 20120501
  2. LYRICA [Suspect]
     Indication: ARTHRALGIA

REACTIONS (1)
  - PAIN [None]
